FAERS Safety Report 7805086-X (Version None)
Quarter: 2011Q4

REPORT INFORMATION
  Report Type: 
  Country: None (occurrence: None)
  Receive Date: 20111010
  Receipt Date: 20111006
  Transmission Date: 20120403
  Serious: Yes (Other)
  Sender: FDA-Public Use
  Company Number: DE-ABBOTT-11P-062-0860640-00

PATIENT
  Sex: Female
  Weight: 60 kg

DRUGS (11)
  1. KAMILLOSAN WUNDBAD [Concomitant]
     Indication: CROHN'S DISEASE
     Dates: start: 20110901, end: 20110901
  2. FERINJECT [Concomitant]
     Indication: CROHN'S DISEASE
     Dosage: ONLY ONE INFUSION ALTOGETHER
     Dates: start: 20110901, end: 20110901
  3. AZATHIOPRINE [Concomitant]
     Indication: CROHN'S DISEASE
     Dosage: 50 MG
     Dates: start: 20090101
  4. UTROGEST [Concomitant]
     Indication: ASSISTED FERTILISATION
     Dates: start: 20110801, end: 20110801
  5. MESALAMINE [Concomitant]
     Indication: CROHN'S DISEASE
     Dates: start: 20110701, end: 20110701
  6. VITAMIN TAB [Concomitant]
     Indication: PRODUCT USED FOR UNKNOWN INDICATION
     Dates: start: 20110901, end: 20110901
  7. HUMIRA [Suspect]
     Indication: CROHN'S DISEASE
     Route: 058
     Dates: start: 20080101
  8. UNKNOWN MEDICATIONS [Concomitant]
     Indication: PRODUCT USED FOR UNKNOWN INDICATION
  9. CHORIOGONADOTROPIN [Concomitant]
     Indication: ASSISTED FERTILISATION
     Dates: start: 20110701, end: 20110901
  10. PUREGON [Concomitant]
     Indication: ASSISTED FERTILISATION
     Route: 058
     Dates: start: 20110701, end: 20110901
  11. ESTROGENIC SUBSTANCE [Concomitant]
     Indication: ASSISTED FERTILISATION
     Dates: start: 20110701, end: 20110901

REACTIONS (9)
  - ABORTION SPONTANEOUS [None]
  - RASH [None]
  - HUMAN CHORIONIC GONADOTROPIN DECREASED [None]
  - ARTHRALGIA [None]
  - OPERATIVE HAEMORRHAGE [None]
  - ABASIA [None]
  - GRIP STRENGTH DECREASED [None]
  - OEDEMA PERIPHERAL [None]
  - ERYTHEMA [None]
